FAERS Safety Report 9144532 (Version 1)
Quarter: 2013Q1

REPORT INFORMATION
  Report Type: Spontaneous
  Country: FR (occurrence: FR)
  Receive Date: 20130306
  Receipt Date: 20130306
  Transmission Date: 20140127
  Serious: Yes (Hospitalization)
  Sender: FDA-Public Use
  Company Number: FR-ROCHE-1198074

PATIENT
  Age: 84 Year
  Sex: Female

DRUGS (14)
  1. LUCENTIS [Suspect]
     Indication: AGE-RELATED MACULAR DEGENERATION
     Route: 050
     Dates: start: 20120604
  2. LUCENTIS [Suspect]
     Route: 050
     Dates: start: 20120206
  3. LUCENTIS [Suspect]
     Route: 050
     Dates: start: 20120104
  4. COZARTAN [Concomitant]
  5. LASILIX [Concomitant]
  6. LANTUS [Concomitant]
  7. LEXOMIL [Concomitant]
  8. DIFRAREL [Concomitant]
  9. PARACETAMOL [Concomitant]
  10. VITAMIN C [Concomitant]
  11. OMEPRAZOLE [Concomitant]
  12. AZITHROMYCIN [Concomitant]
  13. DEXAMETHASONE [Concomitant]
  14. OXYTETRACYCLINE [Concomitant]

REACTIONS (1)
  - Rash pustular [Not Recovered/Not Resolved]
